FAERS Safety Report 7409376-4 (Version None)
Quarter: 2011Q2

REPORT INFORMATION
  Report Type: 
  Country: None (occurrence: None)
  Receive Date: 20110412
  Receipt Date: 20101026
  Transmission Date: 20111010
  Serious: Yes (Hospitalization, Other)
  Sender: FDA-Public Use
  Company Number: US-BAYER-201024036NA

PATIENT
  Age: 27 Year
  Sex: Female
  Weight: 49 kg

DRUGS (13)
  1. YAZ [Suspect]
     Indication: CONTRACEPTION
     Dosage: UNK UNK, QD
     Route: 048
     Dates: start: 20070201, end: 20090815
  2. INDOMETHACIN [Concomitant]
     Dosage: UNK
     Dates: start: 20091123
  3. NAPROXEN [Concomitant]
  4. INDOMETHACIN [Concomitant]
     Dosage: UNK
     Dates: start: 20051226
  5. CELEBREX [Concomitant]
  6. BENADRYL [Concomitant]
     Dosage: UNK UNK, PRN
  7. YAZ [Suspect]
     Indication: PREMENSTRUAL SYNDROME
  8. XANAX [Concomitant]
     Dosage: 0.25 MG, PRN
  9. ALLEGRA [Concomitant]
  10. IBUPROFEN [Concomitant]
     Dosage: UNK
     Dates: start: 20100326
  11. KETOROLAC [Concomitant]
     Dosage: UNK
     Dates: start: 20090812
  12. KETOPROFEN [Concomitant]
  13. TYLENOL ES [Concomitant]
     Dosage: UNK UNK, PRN

REACTIONS (6)
  - VOMITING [None]
  - PAIN [None]
  - CHOLELITHIASIS [None]
  - GALLBLADDER CHOLESTEROLOSIS [None]
  - GALLBLADDER DISORDER [None]
  - GALLBLADDER ENLARGEMENT [None]
